FAERS Safety Report 5945180-1 (Version None)
Quarter: 2008Q4

REPORT INFORMATION
  Report Type: 
  Country: None (occurrence: None)
  Receive Date: 20081107
  Receipt Date: 20081028
  Transmission Date: 20090506
  Serious: Yes (Other)
  Sender: FDA-Public Use
  Company Number: B0543872A

PATIENT
  Age: 30 Year
  Sex: Male

DRUGS (2)
  1. PAROXETINE HCL [Suspect]
  2. ANTI-PSYCHOTIC MEDICATION [Suspect]
     Dosage: 20MG PER DAY

REACTIONS (3)
  - DRUG INTERACTION [None]
  - DRUG WITHDRAWAL SYNDROME [None]
  - SEROTONIN SYNDROME [None]
